FAERS Safety Report 9153889 (Version 1)
Quarter: 2013Q1

REPORT INFORMATION
  Report Type: Spontaneous
  Country: US (occurrence: US)
  Receive Date: 20130311
  Receipt Date: 20130311
  Transmission Date: 20140127
  Serious: Yes (Other)
  Sender: FDA-Public Use
  Company Number: US-JNJFOC-20130302046

PATIENT
  Age: 13 Year
  Sex: Female

DRUGS (1)
  1. MONONESSA [Suspect]
     Indication: OVARIAN CYST
     Route: 048
     Dates: start: 201208, end: 20130226

REACTIONS (3)
  - Haemoptysis [Not Recovered/Not Resolved]
  - Haematochezia [Not Recovered/Not Resolved]
  - Off label use [Unknown]
